FAERS Safety Report 8033667 (Version 3)
Quarter: 2013Q3

REPORT INFORMATION
  Report Type: Spontaneous
  Country: US (occurrence: US)
  Receive Date: 20110713
  Receipt Date: 20130709
  Transmission Date: 20140515
  Serious: Yes (Hospitalization, Other)
  Sender: FDA-Public Use
  Company Number: US-US-EMD SERONO, INC.-232576K08USA

PATIENT
  Age: 45 Year
  Sex: Female
  Weight: 136 kg

DRUGS (14)
  1. REBIF [Suspect]
     Indication: MULTIPLE SCLEROSIS
     Route: 058
     Dates: start: 20030327, end: 20071023
  2. REBIF [Suspect]
     Route: 058
     Dates: start: 20080312, end: 20081031
  3. REBIF [Suspect]
     Route: 058
     Dates: start: 20081203, end: 20110830
  4. REBIF [Suspect]
     Route: 058
     Dates: start: 20120220, end: 20130114
  5. ADVIL /00109201/ [Suspect]
     Indication: PROPHYLAXIS
  6. ASPIRIN [Suspect]
     Indication: PROPHYLAXIS
  7. TIZANIDINE [Concomitant]
     Indication: MUSCLE SPASMS
     Dates: end: 200811
  8. SOLU-MEDROL [Concomitant]
     Indication: MULTIPLE SCLEROSIS RELAPSE
     Route: 042
     Dates: start: 200806, end: 200806
  9. SOLU-MEDROL [Concomitant]
     Route: 042
     Dates: start: 200807, end: 200807
  10. PREDNISONE [Concomitant]
     Indication: MULTIPLE SCLEROSIS RELAPSE
     Dates: start: 200809, end: 20081015
  11. MEDROL                             /00049601/ [Concomitant]
     Indication: MULTIPLE SCLEROSIS RELAPSE
     Route: 048
     Dates: start: 200808, end: 200808
  12. LEXAPRO [Concomitant]
     Indication: DEPRESSION
  13. LEXAPRO [Concomitant]
     Indication: ANXIETY
  14. PAXIL [Concomitant]
     Indication: DEPRESSION

REACTIONS (18)
  - Gastritis [Not Recovered/Not Resolved]
  - Heart rate increased [Recovered/Resolved]
  - Blood pressure diastolic increased [Recovered/Resolved]
  - Hypertension [Recovered/Resolved]
  - Benign oesophageal neoplasm [Unknown]
  - Large intestine polyp [Unknown]
  - Neuralgia [Recovered/Resolved]
  - Tendon disorder [Recovered/Resolved]
  - Gastric ulcer [Unknown]
  - Diarrhoea [Not Recovered/Not Resolved]
  - Anxiety [Recovered/Resolved]
  - Sleep disorder [Unknown]
  - Weight increased [Unknown]
  - Fall [Unknown]
  - Ligament rupture [Unknown]
  - Multiple sclerosis relapse [Unknown]
  - Hepatic enzyme increased [Recovered/Resolved]
  - Influenza like illness [Unknown]
